FAERS Safety Report 10171664 (Version 1)
Quarter: 2014Q2

REPORT INFORMATION
  Report Type: Spontaneous
  Country: US (occurrence: None)
  Receive Date: 20140428
  Receipt Date: 20140428
  Transmission Date: 20141212
  Serious: Yes (Hospitalization)
  Sender: FDA-Public Use
  Company Number: PHEH2014US0001642

PATIENT
  Age: 64 Year
  Sex: Female
  Weight: 72.6 kg

DRUGS (5)
  1. GILENYA [Suspect]
     Indication: RELAPSING-REMITTING MULTIPLE SCLEROSIS
     Route: 048
     Dates: start: 20131217
  2. ASA (ACETYLSALICYLIC ACID) [Concomitant]
  3. LEVOTHYROXINE (LEVOTHYROXINE) [Concomitant]
  4. PRAVASTATIN (PRAVASTATIN) [Concomitant]
  5. EXCEDRIN (CAFFEINE, PARACETAMOL) [Concomitant]

REACTIONS (7)
  - Multiple sclerosis relapse [None]
  - Urinary tract infection [None]
  - Headache [None]
  - Central nervous system lesion [None]
  - Muscular weakness [None]
  - Alpha haemolytic streptococcal infection [None]
  - Pollakiuria [None]
